FAERS Safety Report 19626943 (Version 1)
Quarter: 2021Q3

REPORT INFORMATION
  Report Type: Spontaneous
  Country: US (occurrence: US)
  Receive Date: 20210729
  Receipt Date: 20210729
  Transmission Date: 20211014
  Serious: Yes (Other)
  Sender: FDA-Public Use
  Company Number: NVSC2021US168731

PATIENT
  Age: 82 Year
  Sex: Female
  Weight: 72.57 kg

DRUGS (1)
  1. RECLAST [Suspect]
     Active Substance: ZOLEDRONIC ACID
     Indication: PRODUCT USED FOR UNKNOWN INDICATION
     Dosage: UNK, ONCE/SINGLE
     Route: 042
     Dates: start: 20201203, end: 20201203

REACTIONS (8)
  - Dizziness exertional [Recovered/Resolved]
  - Ophthalmoplegia [Recovering/Resolving]
  - Pyrexia [Recovered/Resolved]
  - Incoherent [Recovered/Resolved]
  - Bone pain [Recovered/Resolved]
  - Cough [Recovered/Resolved]
  - Diplopia [Recovering/Resolving]
  - Fall [Recovered/Resolved]

NARRATIVE: CASE EVENT DATE: 20201203
